FAERS Safety Report 8247016-5 (Version None)
Quarter: 2012Q1

REPORT INFORMATION
  Report Type: 
  Country: None (occurrence: None)
  Receive Date: 20120330
  Receipt Date: 20120330
  Transmission Date: 20120608
  Serious: Yes (Other)
  Sender: FDA-Public Use
  Company Number: None

PATIENT
  Age: 20 Year
  Sex: Female
  Weight: 72.574 kg

DRUGS (1)
  1. CYMBALTA [Suspect]
     Indication: MAJOR DEPRESSION
     Dosage: 60.0 MG
     Route: 048
     Dates: start: 20120225, end: 20120326

REACTIONS (13)
  - NIGHTMARE [None]
  - DRUG DOSE OMISSION [None]
  - SCREAMING [None]
  - DRUG WITHDRAWAL SYNDROME [None]
  - BURNING SENSATION [None]
  - PANIC ATTACK [None]
  - NAUSEA [None]
  - MIDDLE INSOMNIA [None]
  - ANXIETY [None]
  - FEAR [None]
  - VERTIGO [None]
  - RASH [None]
  - ABNORMAL DREAMS [None]
